FAERS Safety Report 18970128 (Version 2)
Quarter: 2024Q4

REPORT INFORMATION
  Report Type: Spontaneous
  Country: CA (occurrence: CA)
  Receive Date: 20210304
  Receipt Date: 20241025
  Transmission Date: 20250114
  Serious: Yes (Life-Threatening, Hospitalization)
  Sender: MERCK
  Company Number: CA-009507513-2103CAN001032

PATIENT
  Age: 64 Year
  Sex: Male
  Weight: 73.935 kg

DRUGS (3)
  1. JANUMET [Suspect]
     Active Substance: METFORMIN HYDROCHLORIDE\SITAGLIPTIN PHOSPHATE
     Indication: Type 2 diabetes mellitus
     Dosage: STRENGTH: ^500/1000^, 1 DOSAGE FORM 2 EVERY 1 DAYS
     Route: 048
     Dates: start: 20140928, end: 20200810
  2. JARDIANCE [Concomitant]
     Active Substance: EMPAGLIFLOZIN
     Dosage: UNK
     Route: 065
  3. PANTOPRAZOLE [Concomitant]
     Active Substance: PANTOPRAZOLE
     Dosage: DOSAGE FORM NOT SPECIFIED
     Route: 065

REACTIONS (2)
  - Abdominal pain [Recovering/Resolving]
  - Lipase [Recovering/Resolving]

NARRATIVE: CASE EVENT DATE: 20200810
